FAERS Safety Report 19975327 (Version 2)
Quarter: 2022Q1

REPORT INFORMATION
  Report Type: Spontaneous
  Country: JP (occurrence: JP)
  Receive Date: 20211020
  Receipt Date: 20220105
  Transmission Date: 20220423
  Serious: Yes (Other)
  Sender: FDA-Public Use
  Company Number: JP-PFIZER INC-202101355356

PATIENT
  Age: 1 Year
  Sex: Female

DRUGS (5)
  1. METHOTREXATE SODIUM [Suspect]
     Active Substance: METHOTREXATE SODIUM
     Indication: Acute lymphocytic leukaemia
     Dosage: 2000 MG/M2, DAILY
     Route: 042
  2. METHOTREXATE SODIUM [Suspect]
     Active Substance: METHOTREXATE SODIUM
     Indication: Acute lymphocytic leukaemia
     Dosage: 8 MG, DAILY
     Route: 037
  3. MERCAPTOPURINE [Concomitant]
     Active Substance: MERCAPTOPURINE
     Dosage: 20 MG, DAILY
     Route: 037
  4. PREDNISOLONE [Concomitant]
     Active Substance: PREDNISOLONE
     Dosage: 6 MG, DAILY
     Route: 037
  5. CYTARABINE [Concomitant]
     Active Substance: CYTARABINE
     Dosage: 20 MG, DAILY
     Route: 037

REACTIONS (4)
  - Myelopathy [Recovered/Resolved]
  - Paraplegia [Recovered/Resolved]
  - Neurotoxicity [Recovered/Resolved]
  - Drug level increased [Recovered/Resolved]
